FAERS Safety Report 9351065 (Version 1)
Quarter: 2013Q2

REPORT INFORMATION
  Report Type: Report from Study
  Country: US (occurrence: US)
  Receive Date: 20130617
  Receipt Date: 20130617
  Transmission Date: 20140414
  Serious: Yes (Hospitalization, Other)
  Sender: FDA-Public Use
  Company Number: PHEH2013US002543

PATIENT
  Age: 52 Year
  Sex: Female
  Weight: 62.59 kg

DRUGS (16)
  1. GILENYA [Suspect]
     Indication: RELAPSING-REMITTING MULTIPLE SCLEROSIS
     Dosage: 0.5 MG, QD
     Route: 048
     Dates: start: 20130102
  2. VYVANSE [Concomitant]
     Indication: FATIGUE
     Dosage: 20 MG, QD
     Route: 048
  3. LISINOPRIL [Concomitant]
     Dosage: 10 MG, DAILY
  4. LEXAPRO [Concomitant]
     Indication: ANXIETY
     Dosage: 20 MG, DAILY
  5. BACLOFEN [Concomitant]
     Indication: MUSCLE SPASTICITY
     Dosage: 30 MG, TID
     Route: 048
  6. GABAPENTIN [Concomitant]
     Indication: PAIN
     Dosage: 800 MG, QID
     Route: 048
  7. HYDROCHLOROTHIAZIDE [Concomitant]
     Dosage: 12.5 MG, DAILY
  8. REQUIP [Concomitant]
  9. BUSPIRONE HYDROCHLORIDE [Concomitant]
     Dosage: 10 MG, DAILY
  10. VESICARE [Concomitant]
     Dosage: 10 MG, DAILY
  11. ASPIRIN [Concomitant]
     Dosage: 325 MG, DAILY
  12. TIZANIDINE HYDROCHLORIDE [Concomitant]
     Indication: MUSCLE SPASTICITY
     Dosage: 4 MG, QHS
     Route: 048
  13. SEROQUEL [Concomitant]
     Dosage: 25 MG, QHS
     Route: 048
  14. NAPROXEN [Concomitant]
     Dosage: 500 MG, BID
     Route: 048
  15. PRAMIPEXOLE DIHYDROCHLORIDE [Concomitant]
     Dosage: 1 MG, TID
     Route: 048
  16. ACETAMINOPHEN [Concomitant]
     Dosage: 2 DF, QD
     Route: 048

REACTIONS (5)
  - Atrioventricular block second degree [Recovering/Resolving]
  - Bradycardia [Recovering/Resolving]
  - Blood pressure decreased [Unknown]
  - Electrocardiogram QRS complex shortened [Unknown]
  - Somnolence [Unknown]
